FAERS Safety Report 24781857 (Version 13)
Quarter: 2025Q3

REPORT INFORMATION
  Report Type: Spontaneous
  Country: US (occurrence: US)
  Receive Date: 20241227
  Receipt Date: 20250925
  Transmission Date: 20251021
  Serious: Yes (Hospitalization, Other)
  Sender: UNITED THERAPEUTICS
  Company Number: US-UNITED THERAPEUTICS-UNT-2024-041140

PATIENT
  Sex: Female
  Weight: 102.04 kg

DRUGS (32)
  1. ORENITRAM [Interacting]
     Active Substance: TREPROSTINIL
     Indication: Pulmonary arterial hypertension
     Dosage: 7.5 MG, TID
  2. ORENITRAM [Interacting]
     Active Substance: TREPROSTINIL
  3. ORENITRAM [Interacting]
     Active Substance: TREPROSTINIL
     Dosage: 1.25 MG, TID (RESTARTED)
     Dates: start: 20250331, end: 202504
  4. ORENITRAM [Interacting]
     Active Substance: TREPROSTINIL
     Dosage: 0.5 MG, Q8H
     Dates: start: 202504, end: 2025
  5. ORENITRAM [Interacting]
     Active Substance: TREPROSTINIL
     Dosage: 2 MG, Q8H
     Dates: start: 2025, end: 2025
  6. ORENITRAM [Interacting]
     Active Substance: TREPROSTINIL
     Dosage: 3.75 MG, Q8H
     Dates: start: 2025, end: 2025
  7. ORENITRAM [Interacting]
     Active Substance: TREPROSTINIL
     Dosage: 4 MG, Q8H
     Dates: start: 2025, end: 2025
  8. ORENITRAM [Interacting]
     Active Substance: TREPROSTINIL
     Dosage: 5 MG, TID
     Dates: start: 2025
  9. ORENITRAM [Interacting]
     Active Substance: TREPROSTINIL
     Indication: Pulmonary arterial hypertension
  10. ORENITRAM [Interacting]
     Active Substance: TREPROSTINIL
     Indication: Pulmonary arterial hypertension
  11. ORENITRAM [Interacting]
     Active Substance: TREPROSTINIL
     Indication: Pulmonary arterial hypertension
  12. ORENITRAM [Interacting]
     Active Substance: TREPROSTINIL
     Indication: Pulmonary arterial hypertension
  13. DILTIAZEM HYDROCHLORIDE [Concomitant]
     Active Substance: DILTIAZEM HYDROCHLORIDE
     Indication: Product used for unknown indication
  14. TADALAFIL [Concomitant]
     Active Substance: TADALAFIL
     Indication: Product used for unknown indication
  15. LASIX [Concomitant]
     Active Substance: FUROSEMIDE
     Indication: Product used for unknown indication
  16. SPIRONOLACTONE [Concomitant]
     Active Substance: SPIRONOLACTONE
     Indication: Product used for unknown indication
  17. LETAIRIS [Concomitant]
     Active Substance: AMBRISENTAN
     Indication: Product used for unknown indication
  18. VITAMIN B12 [Concomitant]
     Active Substance: CYANOCOBALAMIN
     Indication: Product used for unknown indication
  19. TIZANIDINE HYDROCHLORIDE [Concomitant]
     Active Substance: TIZANIDINE HYDROCHLORIDE
     Indication: Product used for unknown indication
  20. TRAZODONE HCL [Concomitant]
     Active Substance: TRAZODONE HYDROCHLORIDE
     Indication: Product used for unknown indication
  21. ADEMPAS [Concomitant]
     Active Substance: RIOCIGUAT
     Indication: Product used for unknown indication
  22. BUPROPION [Concomitant]
     Active Substance: BUPROPION
     Indication: Product used for unknown indication
  23. ASPIRIN [Concomitant]
     Active Substance: ASPIRIN
     Indication: Product used for unknown indication
  24. CRANBERRY [Concomitant]
     Active Substance: CRANBERRY
     Indication: Product used for unknown indication
  25. MELOXICAM [Concomitant]
     Active Substance: MELOXICAM
     Indication: Product used for unknown indication
  26. REVATIO [Concomitant]
     Active Substance: SILDENAFIL CITRATE
     Indication: Product used for unknown indication
  27. IRON [Concomitant]
     Active Substance: IRON
     Indication: Product used for unknown indication
  28. VITAMIN C [Concomitant]
     Active Substance: ASCORBIC ACID
     Indication: Product used for unknown indication
  29. POTASSIUM CHLORIDE [Concomitant]
     Active Substance: POTASSIUM CHLORIDE
     Indication: Product used for unknown indication
  30. LOPERAMIDE [Concomitant]
     Active Substance: LOPERAMIDE
     Indication: Product used for unknown indication
  31. NAPROXEN [Concomitant]
     Active Substance: NAPROXEN
     Indication: Product used for unknown indication
  32. VALTREX [Concomitant]
     Active Substance: VALACYCLOVIR HYDROCHLORIDE
     Indication: Product used for unknown indication

REACTIONS (11)
  - Nephropathy toxic [Recovered/Resolved]
  - Clostridium difficile infection [Recovered/Resolved]
  - Arthropathy [Recovered/Resolved]
  - Drug interaction [Recovered/Resolved]
  - Tremor [Unknown]
  - Vision blurred [Unknown]
  - Dehydration [Unknown]
  - Dyspnoea [Recovered/Resolved]
  - Fatigue [Unknown]
  - Drug intolerance [Recovered/Resolved]
  - Therapy non-responder [Unknown]

NARRATIVE: CASE EVENT DATE: 20240101
